FAERS Safety Report 8157951-4 (Version None)
Quarter: 2012Q1

REPORT INFORMATION
  Report Type: 
  Country: None (occurrence: None)
  Receive Date: 20120222
  Receipt Date: 20120213
  Transmission Date: 20120608
  Serious: Yes (Other)
  Sender: FDA-Public Use
  Company Number: PHHY2012BR013133

PATIENT
  Sex: Male

DRUGS (2)
  1. DIOVAN [Suspect]
     Indication: HYPERTENSION
     Dosage: 2 TABLETS (80 MG) A DAY
     Route: 048
  2. SEDATIVES [Concomitant]
     Indication: SLEEP DISORDER
     Dosage: 0.5 DF, UNK

REACTIONS (3)
  - INCONTINENCE [None]
  - URETHRAL OBSTRUCTION [None]
  - PROSTATOMEGALY [None]
